FAERS Safety Report 10424537 (Version 2)
Quarter: 2014Q3

REPORT INFORMATION
  Report Type: Report from Study
  Country: US (occurrence: US)
  Receive Date: 20140902
  Receipt Date: 20140902
  Transmission Date: 20150326
  Serious: Yes (Hospitalization, Other)
  Sender: FDA-Public Use
  Company Number: US-ACTELION-A-NJ2014-103055

PATIENT
  Age: 80 Year
  Sex: Male

DRUGS (3)
  1. VELETRI [Suspect]
     Active Substance: EPOPROSTENOL
     Indication: PULMONARY ARTERIAL HYPERTENSION
     Dosage: 6 NG/KG, PER MIN
     Route: 041
     Dates: start: 20140703
  2. ADCIRCA [Concomitant]
     Active Substance: TADALAFIL
  3. XARELTO [Concomitant]
     Active Substance: RIVAROXABAN

REACTIONS (6)
  - Diarrhoea [Unknown]
  - Flushing [Unknown]
  - Cardiac pacemaker insertion [Unknown]
  - Headache [Unknown]
  - Atrial fibrillation [Unknown]
  - Oedema [Unknown]

NARRATIVE: CASE EVENT DATE: 201407
